FAERS Safety Report 12042619 (Version 1)
Quarter: 2016Q1

REPORT INFORMATION
  Report Type: Spontaneous
  Country: US (occurrence: US)
  Receive Date: 20160208
  Receipt Date: 20160208
  Transmission Date: 20160526
  Serious: No
  Sender: FDA-Public Use
  Company Number: US-BRISTOL-MYERS SQUIBB COMPANY-BMS-2016-006433

PATIENT
  Sex: Female

DRUGS (3)
  1. KENALOG-40 [Suspect]
     Active Substance: TRIAMCINOLONE ACETONIDE
     Indication: ASTHMA
     Dosage: UNK
     Route: 030
     Dates: start: 20151217, end: 20151217
  2. PROAIR HFA [Concomitant]
     Active Substance: ALBUTEROL SULFATE
     Indication: DYSPNOEA
     Dosage: UNK
     Route: 045
  3. QVAR [Concomitant]
     Active Substance: BECLOMETHASONE DIPROPIONATE
     Indication: DYSPNOEA
     Dosage: UNK
     Route: 045

REACTIONS (7)
  - Respiratory disorder [Not Recovered/Not Resolved]
  - Nightmare [Unknown]
  - Arthralgia [Unknown]
  - Dysgeusia [Unknown]
  - Back pain [Unknown]
  - Vision blurred [Unknown]
  - Pain in extremity [Unknown]
